FAERS Safety Report 6334367-4 (Version None)
Quarter: 2009Q3

REPORT INFORMATION
  Report Type: 
  Country: None (occurrence: None)
  Receive Date: 20090831
  Receipt Date: 20090824
  Transmission Date: 20100115
  Serious: Yes (Hospitalization)
  Sender: FDA-Public Use
  Company Number: JP-SP-2009-03373

PATIENT
  Age: 67 Year
  Sex: Male

DRUGS (4)
  1. IMMUCYST [Suspect]
     Indication: BLADDER CANCER
     Route: 043
     Dates: start: 20090617, end: 20090715
  2. PIOGLITAZONE HCL [Concomitant]
     Dates: end: 20090716
  3. ROSUVASTATIN CALCIUM [Concomitant]
     Dates: end: 20090814
  4. OLMESARTAN MEDOXOMIL [Concomitant]
     Dates: end: 20090716

REACTIONS (3)
  - BOVINE TUBERCULOSIS [None]
  - HEPATIC FUNCTION ABNORMAL [None]
  - PYREXIA [None]
